FAERS Safety Report 5056573-1 (Version None)
Quarter: 2006Q3

REPORT INFORMATION
  Report Type: 
  Country: None (occurrence: None)
  Receive Date: 20060714
  Receipt Date: 20060629
  Transmission Date: 20061208
  Serious: Yes (Hospitalization)
  Sender: FDA-Public Use
  Company Number: 007875

PATIENT
  Age: 38 Year
  Sex: Female
  Weight: 81.6 kg

DRUGS (3)
  1. MIRCETTE [Suspect]
     Indication: MENSTRUATION IRREGULAR
     Dosage: 1 TABLET, QD, ORAL
     Route: 048
     Dates: start: 19980101, end: 20050920
  2. MIRCETTE [Suspect]
     Indication: ORAL CONTRACEPTION
     Dosage: 1 TABLET, QD, ORAL
     Route: 048
     Dates: start: 19980101, end: 20050920
  3. ALLEGRA-D(PSEUDOEPHEDRINE HYDROCHLORIDE, FEXOFENADINE) [Suspect]
     Dosage: QD, ORAL
     Route: 048
     Dates: start: 20000101, end: 20050920

REACTIONS (12)
  - APHASIA [None]
  - APRAXIA [None]
  - ASTHENIA [None]
  - CEREBROVASCULAR ACCIDENT [None]
  - GAIT DISTURBANCE [None]
  - HEMIPARESIS [None]
  - HYPOAESTHESIA [None]
  - HYPOAESTHESIA FACIAL [None]
  - MIGRAINE [None]
  - PARAESTHESIA [None]
  - VASOCONSTRICTION [None]
  - VOMITING [None]
